FAERS Safety Report 5142088-9 (Version None)
Quarter: 2006Q4

REPORT INFORMATION
  Report Type: 
  Country: None (occurrence: None)
  Receive Date: 20061027
  Receipt Date: 20061011
  Transmission Date: 20070319
  Serious: No
  Sender: FDA-Public Use
  Company Number: US018473

PATIENT
  Sex: Female

DRUGS (2)
  1. FENTORA [Suspect]
     Indication: PAIN
     Dosage: 1600 UG BUCCAL
     Route: 002
  2. DURAGESIC-100 [Concomitant]

REACTIONS (2)
  - DRUG PRESCRIBING ERROR [None]
  - INTERCEPTED MEDICATION ERROR [None]
